FAERS Safety Report 8624531-3 (Version None)
Quarter: 2012Q3

REPORT INFORMATION
  Report Type: 
  Country: None (occurrence: None)
  Receive Date: 20120827
  Receipt Date: 20120821
  Transmission Date: 20120928
  Serious: Yes (Other)
  Sender: FDA-Public Use
  Company Number: US-PFIZER INC-2012171243

PATIENT
  Age: 79 Year
  Sex: Male
  Weight: 58.957 kg

DRUGS (3)
  1. TOVIAZ [Suspect]
     Dosage: 8 MG, 2X/DAY
     Route: 048
     Dates: start: 20120101
  2. TOVIAZ [Suspect]
     Dosage: 8 MG, 1X/DAY
     Route: 048
     Dates: start: 20120101, end: 20120101
  3. TOVIAZ [Suspect]
     Indication: RENAL DISORDER
     Dosage: 4 MG, 1X/DAY
     Route: 048
     Dates: start: 20120101, end: 20120101

REACTIONS (6)
  - RENAL DISORDER [None]
  - GASTRIC DISORDER [None]
  - DIABETES MELLITUS [None]
  - WEIGHT DECREASED [None]
  - POLLAKIURIA [None]
  - INCORRECT DOSE ADMINISTERED [None]
